FAERS Safety Report 9388155 (Version 2)
Quarter: 2014Q1

REPORT INFORMATION
  Report Type: Spontaneous
  Country: FR (occurrence: FR)
  Receive Date: 20130708
  Receipt Date: 20140115
  Transmission Date: 20141002
  Serious: Yes (Hospitalization, Other)
  Sender: FDA-Public Use
  Company Number: FR-BRISTOL-MYERS SQUIBB COMPANY-19068337

PATIENT
  Age: 47 Year
  Sex: Male

DRUGS (4)
  1. SUSTIVA [Suspect]
     Dates: start: 2003
  2. ANDRACTIM [Suspect]
     Indication: GALACTORRHOEA
     Dosage: LAST DOSE: 08-JUN-2013
     Route: 003
     Dates: start: 201303, end: 20130608
  3. ANDRACTIM [Suspect]
     Indication: GYNAECOMASTIA
     Dosage: LAST DOSE: 08-JUN-2013
     Route: 003
     Dates: start: 201303, end: 20130608
  4. COMBIVIR [Suspect]
     Dates: start: 2003

REACTIONS (5)
  - Pulmonary embolism [Recovered/Resolved]
  - Deep vein thrombosis [Recovered/Resolved]
  - Gynaecomastia [Recovered/Resolved]
  - Galactorrhoea [Recovered/Resolved]
  - Rectal haemorrhage [Recovered/Resolved]
